FAERS Safety Report 13861229 (Version 3)
Quarter: 2017Q3

REPORT INFORMATION
  Report Type: Report from Study
  Country: US (occurrence: US)
  Receive Date: 20170811
  Receipt Date: 20170829
  Transmission Date: 20171127
  Serious: No
  Sender: FDA-Public Use
  Company Number: US-ALEXION PHARMACEUTICALS INC.-A201708998

PATIENT
  Sex: Male

DRUGS (2)
  1. STRENSIQ [Suspect]
     Active Substance: ASFOTASE ALFA
     Indication: PRODUCT USED FOR UNKNOWN INDICATION
     Route: 058
  2. AMOXICILLIN. [Concomitant]
     Active Substance: AMOXICILLIN
     Indication: PRODUCT USED FOR UNKNOWN INDICATION
     Route: 065

REACTIONS (9)
  - Crying [Unknown]
  - Vomiting [Unknown]
  - Injection site swelling [Unknown]
  - Diarrhoea [Recovered/Resolved]
  - Injection site erythema [Unknown]
  - Injection site rash [Unknown]
  - Injection site reaction [Unknown]
  - Injection site mass [Unknown]
  - Pain [Unknown]

NARRATIVE: CASE EVENT DATE: 20170805
